FAERS Safety Report 10556873 (Version 1)
Quarter: 2014Q4

REPORT INFORMATION
  Report Type: Spontaneous
  Country: JP (occurrence: JP)
  Receive Date: 20141031
  Receipt Date: 20141031
  Transmission Date: 20150529
  Serious: Yes (Other)
  Sender: FDA-Public Use
  Company Number: JP-VERTEX PHARMACEUTICALS-2014-004423

PATIENT
  Age: 58 Year
  Sex: Female

DRUGS (3)
  1. PEGINTERFERON ALFA-2B [Suspect]
     Active Substance: PEGINTERFERON ALFA-2B
     Indication: CHRONIC HEPATITIS C
     Route: 058
  2. TELAVIC [Suspect]
     Active Substance: TELAPREVIR
     Indication: HEPATITIS C
     Dosage: UNK
     Route: 048
     Dates: start: 20130405
  3. RIBAVIRIN. [Suspect]
     Active Substance: RIBAVIRIN
     Indication: CHRONIC HEPATITIS C
     Route: 048

REACTIONS (6)
  - Hyperuricaemia [Unknown]
  - Platelet count decreased [Unknown]
  - Urinary tract infection [Unknown]
  - Anaemia [Unknown]
  - Rash [Unknown]
  - Decreased appetite [Unknown]
